FAERS Safety Report 18103685 (Version 1)
Quarter: 2020Q3

REPORT INFORMATION
  Report Type: Spontaneous
  Country: US (occurrence: US)
  Receive Date: 20200731
  Receipt Date: 20200731
  Transmission Date: 20201103
  Serious: Yes (Hospitalization)
  Sender: FDA-Public Use
  Company Number: None

PATIENT
  Age: 47 Year
  Sex: Male

DRUGS (14)
  1. MYCOPHENOLIC [Suspect]
     Active Substance: MYCOPHENOLIC ACID
     Indication: RENAL TRANSPLANT
     Route: 048
     Dates: start: 20200221
  2. AMOXICILLIN. [Concomitant]
     Active Substance: AMOXICILLIN
  3. ENVARSUS XR [Concomitant]
     Active Substance: TACROLIMUS
  4. ATORVASTATIN [Concomitant]
     Active Substance: ATORVASTATIN
  5. BACTRIM [Concomitant]
     Active Substance: SULFAMETHOXAZOLE\TRIMETHOPRIM
  6. FERRUS SULF [Concomitant]
  7. SYMBICORT [Concomitant]
     Active Substance: BUDESONIDE\FORMOTEROL FUMARATE DIHYDRATE
  8. VALCYTE [Concomitant]
     Active Substance: VALGANCICLOVIR HYDROCHLORIDE
  9. FUROSEMIDE. [Concomitant]
     Active Substance: FUROSEMIDE
  10. NOVOLOG [Concomitant]
     Active Substance: INSULIN ASPART
  11. PREDNISONE. [Concomitant]
     Active Substance: PREDNISONE
  12. PROCARDIA [Concomitant]
     Active Substance: NIFEDIPINE
  13. TACTOLIMUS [Concomitant]
  14. ALBUTEROL. [Concomitant]
     Active Substance: ALBUTEROL

REACTIONS (1)
  - Foot operation [None]

NARRATIVE: CASE EVENT DATE: 20200629
